FAERS Safety Report 9529384 (Version 13)
Quarter: 2017Q2

REPORT INFORMATION
  Report Type: Report from Study
  Country: CA (occurrence: CA)
  Receive Date: 20130917
  Receipt Date: 20170619
  Transmission Date: 20170830
  Serious: Yes (Hospitalization, Other)
  Sender: FDA-Public Use
  Company Number: CA-ROCHE-1257211

PATIENT
  Age: 57 Year
  Sex: Female
  Weight: 73 kg

DRUGS (29)
  1. ACTEMRA [Suspect]
     Active Substance: TOCILIZUMAB
     Indication: RHEUMATOID ARTHRITIS
     Route: 042
     Dates: start: 20130311
  2. AMITRIPTYLINE [Suspect]
     Active Substance: AMITRIPTYLINE
     Indication: PRODUCT USED FOR UNKNOWN INDICATION
     Route: 065
  3. NASONEX [Concomitant]
     Active Substance: MOMETASONE FUROATE
  4. PLAQUENIL [Concomitant]
     Active Substance: HYDROXYCHLOROQUINE SULFATE
  5. ATIVAN [Concomitant]
     Active Substance: LORAZEPAM
  6. XELJANZ [Concomitant]
     Active Substance: TOFACITINIB CITRATE
  7. HYDROMORPHONE [Suspect]
     Active Substance: HYDROMORPHONE
     Indication: PAIN
     Route: 065
  8. OMEGA-3 ACIDS [Concomitant]
     Active Substance: OMEGA-3 FATTY ACIDS
  9. APO-FUROSEMIDE [Concomitant]
     Active Substance: FUROSEMIDE
  10. PANTOPRAZOLE [Concomitant]
     Active Substance: PANTOPRAZOLE
  11. ACTEMRA [Suspect]
     Active Substance: TOCILIZUMAB
     Route: 042
     Dates: start: 20130404
  12. ACTEMRA [Suspect]
     Active Substance: TOCILIZUMAB
     Route: 042
     Dates: start: 20140401
  13. CYMBALTA [Concomitant]
     Active Substance: DULOXETINE HYDROCHLORIDE
  14. ACTEMRA [Suspect]
     Active Substance: TOCILIZUMAB
     Route: 042
     Dates: start: 20130924
  15. NALTREXONE [Suspect]
     Active Substance: NALTREXONE
     Indication: PRODUCT USED FOR UNKNOWN INDICATION
     Route: 065
  16. MESTINON [Suspect]
     Active Substance: PYRIDOSTIGMINE BROMIDE
     Indication: PRODUCT USED FOR UNKNOWN INDICATION
     Route: 065
  17. HYDROCHLOROTHIAZIDE. [Concomitant]
     Active Substance: HYDROCHLOROTHIAZIDE
  18. PREDNISONE. [Concomitant]
     Active Substance: PREDNISONE
  19. FUROSEMIDE. [Concomitant]
     Active Substance: FUROSEMIDE
  20. ALENDRONATE [Concomitant]
     Active Substance: ALENDRONATE SODIUM
  21. ACTEMRA [Suspect]
     Active Substance: TOCILIZUMAB
     Route: 042
     Dates: start: 20140924, end: 20140924
  22. ENALAPRIL [Concomitant]
     Active Substance: ENALAPRIL
  23. ELAVIL [Concomitant]
     Active Substance: AMITRIPTYLINE HYDROCHLORIDE
  24. METHYLDOPA. [Concomitant]
     Active Substance: METHYLDOPA
  25. FOLIC ACID. [Concomitant]
     Active Substance: FOLIC ACID
  26. ACTEMRA [Suspect]
     Active Substance: TOCILIZUMAB
     Route: 042
     Dates: start: 20140730
  27. ACTEMRA [Suspect]
     Active Substance: TOCILIZUMAB
     Indication: RHEUMATOID ARTHRITIS
     Route: 058
     Dates: start: 20150226
  28. METHOTREXATE. [Concomitant]
     Active Substance: METHOTREXATE
     Route: 048
  29. MORPHINE [Concomitant]
     Active Substance: MORPHINE

REACTIONS (56)
  - Diaphragmatic paralysis [Unknown]
  - Panic attack [Unknown]
  - Drug hypersensitivity [Recovering/Resolving]
  - Muscular weakness [Unknown]
  - Cyst [Not Recovered/Not Resolved]
  - Drug ineffective [Unknown]
  - Fatigue [Unknown]
  - Skin ulcer [Unknown]
  - Epistaxis [Unknown]
  - Musculoskeletal pain [Not Recovered/Not Resolved]
  - Sinusitis [Unknown]
  - Oral herpes [Not Recovered/Not Resolved]
  - Weight decreased [Not Recovered/Not Resolved]
  - Injection site pain [Recovering/Resolving]
  - Enteritis [Unknown]
  - Cellulitis [Unknown]
  - Right ventricular failure [Unknown]
  - Rheumatoid arthritis [Not Recovered/Not Resolved]
  - Myasthenia gravis [Unknown]
  - Gastric infection [Recovered/Resolved]
  - Hypoaesthesia [Unknown]
  - Haemoglobin abnormal [Unknown]
  - Nausea [Unknown]
  - Vomiting [Unknown]
  - Hepatotoxicity [Unknown]
  - Hepatic enzyme increased [Not Recovered/Not Resolved]
  - Urticaria [Unknown]
  - Speech disorder [Recovering/Resolving]
  - Neck pain [Not Recovered/Not Resolved]
  - Pyrexia [Not Recovered/Not Resolved]
  - Headache [Unknown]
  - Pain [Unknown]
  - Diplopia [Unknown]
  - Sensory disturbance [Not Recovered/Not Resolved]
  - Paraesthesia [Unknown]
  - Fatigue [Recovering/Resolving]
  - Blood creatine phosphokinase increased [Unknown]
  - Diarrhoea [Unknown]
  - Hypokalaemia [Unknown]
  - Thrombosis [Unknown]
  - Oxygen saturation decreased [Unknown]
  - Arthralgia [Not Recovered/Not Resolved]
  - Thermal burn [Unknown]
  - Infection [Unknown]
  - Myalgia [Unknown]
  - Pain in extremity [Recovering/Resolving]
  - Dyspnoea [Recovering/Resolving]
  - Respiratory failure [Unknown]
  - Fluid retention [Unknown]
  - Blood pressure increased [Not Recovered/Not Resolved]
  - Sleep disorder [Not Recovered/Not Resolved]
  - Joint swelling [Unknown]
  - Apnoea [Unknown]
  - Adiposis dolorosa [Not Recovered/Not Resolved]
  - Bursitis [Unknown]
  - Dysphagia [Unknown]

NARRATIVE: CASE EVENT DATE: 20130810
